FAERS Safety Report 18507567 (Version 2)
Quarter: 2020Q4

REPORT INFORMATION
  Report Type: Spontaneous
  Country: RO (occurrence: RO)
  Receive Date: 20201116
  Receipt Date: 20201127
  Transmission Date: 20210114
  Serious: Yes (Hospitalization)
  Sender: FDA-Public Use
  Company Number: RO-SEATTLE GENETICS-2020SGN05090

PATIENT
  Sex: Male

DRUGS (1)
  1. ADCETRIS [Suspect]
     Active Substance: BRENTUXIMAB VEDOTIN
     Indication: LYMPHOMA
     Dosage: 1.8 MILLIGRAM/KILOGRAM
     Route: 042
     Dates: start: 20201030

REACTIONS (3)
  - Disorientation [Not Recovered/Not Resolved]
  - Abnormal behaviour [Not Recovered/Not Resolved]
  - Aggression [Not Recovered/Not Resolved]

NARRATIVE: CASE EVENT DATE: 20201105
